FAERS Safety Report 19617102 (Version 1)
Quarter: 2021Q3

REPORT INFORMATION
  Report Type: Spontaneous
  Country: US (occurrence: US)
  Receive Date: 20210727
  Receipt Date: 20210727
  Transmission Date: 20211014
  Serious: No
  Sender: FDA-Public Use
  Company Number: US-ABBVIE-21K-163-3908262-00

PATIENT
  Age: 74 Year
  Sex: Female
  Weight: 36.32 kg

DRUGS (1)
  1. SYNTHROID [Suspect]
     Active Substance: LEVOTHYROXINE SODIUM
     Indication: HYPOTHYROIDISM
     Route: 048
     Dates: start: 20210514, end: 20210514

REACTIONS (7)
  - Dysphagia [Recovered/Resolved]
  - Malaise [Not Recovered/Not Resolved]
  - Foreign body in throat [Recovered/Resolved]
  - Heart rate increased [Recovering/Resolving]
  - Product dispensing error [Unknown]
  - Fatigue [Not Recovered/Not Resolved]
  - Hypertension [Recovering/Resolving]

NARRATIVE: CASE EVENT DATE: 20210514
